FAERS Safety Report 14702378 (Version 1)
Quarter: 2018Q2

REPORT INFORMATION
  Report Type: Report from Study
  Country: MX (occurrence: MX)
  Receive Date: 20180401
  Receipt Date: 20180401
  Transmission Date: 20180711
  Serious: Yes (Hospitalization)
  Sender: FDA-Public Use
  Company Number: PHHY2018MX051613

PATIENT
  Sex: Male

DRUGS (1)
  1. EXFORGE HCT [Suspect]
     Active Substance: AMLODIPINE BESYLATE\HYDROCHLOROTHIAZIDE\VALSARTAN
     Indication: HYPERTENSION
     Dosage: 0.5 DF (AMLODIPINE 10MG, HYDROCHLOROTHIAZIDE 25MG AND VALSARTAN 320MG), QD
     Route: 048

REACTIONS (3)
  - Gastrointestinal infection [Recovering/Resolving]
  - Wrong technique in product usage process [Unknown]
  - Drug prescribing error [Unknown]
